FAERS Safety Report 4688236-6 (Version None)
Quarter: 2005Q2

REPORT INFORMATION
  Report Type: 
  Country: None (occurrence: None)
  Receive Date: 20050609
  Receipt Date: 20050527
  Transmission Date: 20051028
  Serious: Yes (Death)
  Sender: FDA-Public Use
  Company Number: 2005082154

PATIENT
  Sex: Female

DRUGS (2)
  1. CELEBREX [Suspect]
     Indication: INFLAMMATION
     Dates: start: 19990331, end: 20030608
  2. CELEBREX [Suspect]
     Indication: PAIN
     Dates: start: 19990331, end: 20030608

REACTIONS (1)
  - MYOCARDIAL INFARCTION [None]
